FAERS Safety Report 15008884 (Version 3)
Quarter: 2020Q1

REPORT INFORMATION
  Report Type: Spontaneous
  Country: RU (occurrence: RU)
  Receive Date: 20180613
  Receipt Date: 20200325
  Transmission Date: 20200409
  Serious: Yes (Hospitalization, Other)
  Sender: FDA-Public Use
  Company Number: RU-009507513-1804RUS008725

PATIENT
  Sex: Male

DRUGS (2)
  1. PEGINTRON [Suspect]
     Active Substance: PEGINTERFERON ALFA-2B
     Indication: HEPATITIS C
     Dosage: UNK
     Dates: start: 20130621, end: 201311
  2. RIBAVIRIN. [Suspect]
     Active Substance: RIBAVIRIN
     Indication: HEPATITIS C
     Dosage: 3 TABLETS 2 TIMES A DAY
     Route: 048
     Dates: start: 20130621, end: 201311

REACTIONS (32)
  - Cellulitis [Unknown]
  - Acute psychosis [Unknown]
  - Depression [Unknown]
  - Aggression [Unknown]
  - Nicotine dependence [Unknown]
  - Confusional state [Unknown]
  - Headache [Unknown]
  - Hallucination, visual [Unknown]
  - Mood swings [Unknown]
  - Sinusitis [Unknown]
  - Hallucination, auditory [Unknown]
  - Asthenia [Unknown]
  - Mental disorder [Unknown]
  - Tinnitus [Unknown]
  - False positive investigation result [Unknown]
  - Hyperkinesia [Unknown]
  - Dermatosis [Unknown]
  - Abdominal discomfort [Unknown]
  - Insomnia [Unknown]
  - Irritability [Unknown]
  - Syncope [Unknown]
  - Communication disorder [Unknown]
  - Pyrexia [Unknown]
  - Dizziness [Unknown]
  - Anxiety [Unknown]
  - Delirium [Unknown]
  - Gingival disorder [Unknown]
  - Impaired work ability [Unknown]
  - Fear [Unknown]
  - Memory impairment [Recovering/Resolving]
  - Decreased appetite [Unknown]
  - Asthenia [Unknown]

NARRATIVE: CASE EVENT DATE: 2013
